APPROVED DRUG PRODUCT: RAPAMUNE
Active Ingredient: SIROLIMUS
Strength: 2MG
Dosage Form/Route: TABLET;ORAL
Application: N021110 | Product #002 | TE Code: AB
Applicant: PF PRISM CV
Approved: Aug 22, 2002 | RLD: Yes | RS: Yes | Type: RX